FAERS Safety Report 4734764-4 (Version None)
Quarter: 2005Q3

REPORT INFORMATION
  Report Type: 
  Country: None (occurrence: None)
  Receive Date: 20050804
  Receipt Date: 20050719
  Transmission Date: 20060218
  Serious: Yes (Death, Hospitalization)
  Sender: FDA-Public Use
  Company Number: GB-GLAXOSMITHKLINE-B0388190A

PATIENT
  Age: 75 Year
  Sex: Male

DRUGS (4)
  1. ROSIGLITAZONE [Suspect]
     Dosage: 1TAB TWICE PER DAY
     Route: 065
     Dates: start: 20050323
  2. VITAMIN K [Concomitant]
  3. CLEXANE [Concomitant]
  4. ANTIBIOTICS [Concomitant]
     Route: 042

REACTIONS (11)
  - ABDOMINAL TENDERNESS [None]
  - CHOLECYSTITIS CHRONIC [None]
  - CHOLELITHIASIS [None]
  - COAGULOPATHY [None]
  - CONFUSIONAL STATE [None]
  - DIARRHOEA [None]
  - ELECTROMECHANICAL DISSOCIATION [None]
  - HEPATIC FUNCTION ABNORMAL [None]
  - HEPATIC NECROSIS [None]
  - SEPSIS [None]
  - VOMITING [None]
